FAERS Safety Report 6822453-1 (Version None)
Quarter: 2010Q3

REPORT INFORMATION
  Report Type: 
  Country: None (occurrence: None)
  Receive Date: 20100708
  Receipt Date: 20100702
  Transmission Date: 20110219
  Serious: Yes (Death)
  Sender: FDA-Public Use
  Company Number: JP-ABBOTT-10P-087-0655197-00

PATIENT
  Age: 66 Year
  Sex: Female

DRUGS (6)
  1. WARFARIN [Suspect]
     Indication: PRODUCT USED FOR UNKNOWN INDICATION
     Route: 048
     Dates: end: 20100628
  2. BLOPRESS TABLETS [Suspect]
     Indication: PRODUCT USED FOR UNKNOWN INDICATION
     Route: 048
     Dates: end: 20100628
  3. SYMBICORT [Suspect]
     Indication: RESPIRATORY THERAPY
     Dosage: 160/4.5 MCG
     Route: 055
     Dates: start: 20100609, end: 20100628
  4. MEPTIN [Suspect]
     Indication: RESPIRATORY THERAPY
     Route: 055
     Dates: end: 20100628
  5. ASPARA-CA [Suspect]
     Indication: PRODUCT USED FOR UNKNOWN INDICATION
     Route: 048
     Dates: start: 20100623, end: 20100628
  6. DIURETICS [Concomitant]
     Indication: PRODUCT USED FOR UNKNOWN INDICATION

REACTIONS (1)
  - HYPOKALAEMIA [None]
